FAERS Safety Report 14107695 (Version 3)
Quarter: 2018Q1

REPORT INFORMATION
  Report Type: Spontaneous
  Country: IT (occurrence: IT)
  Receive Date: 20171019
  Receipt Date: 20180215
  Transmission Date: 20180508
  Serious: Yes (Other)
  Sender: FDA-Public Use
  Company Number: IT-009507513-1710ITA007508

PATIENT
  Age: 13 Year
  Sex: Male
  Weight: 156 kg

DRUGS (1)
  1. AERIUS [Suspect]
     Active Substance: DESLORATADINE
     Dosage: 5 MG, QD
     Route: 048
     Dates: start: 20151001, end: 20171010

REACTIONS (3)
  - Restlessness [Not Recovered/Not Resolved]
  - Aggression [Not Recovered/Not Resolved]
  - Verbal abuse [Not Recovered/Not Resolved]

NARRATIVE: CASE EVENT DATE: 20170101
